FAERS Safety Report 14166484 (Version 1)
Quarter: 2017Q4

REPORT INFORMATION
  Report Type: Spontaneous
  Country: US (occurrence: US)
  Receive Date: 20171106
  Receipt Date: 20171106
  Transmission Date: 20180321
  Serious: Yes (Other)
  Sender: FDA-Public Use
  Company Number: None

PATIENT
  Age: 66 Year
  Sex: Male
  Weight: 57.15 kg

DRUGS (7)
  1. HYDROMORPHONE [Concomitant]
     Active Substance: HYDROMORPHONE
  2. VITAMIN D [Concomitant]
     Active Substance: CHOLECALCIFEROL
  3. VITAMIN K2 [Concomitant]
     Active Substance: MENAQUINONE 6
  4. 81 MG ASPIRIN [Concomitant]
     Active Substance: ASPIRIN
  5. ELIQUIS [Suspect]
     Active Substance: APIXABAN
     Indication: THROMBOSIS
     Dosage: ?          QUANTITY:1 TABLET(S);?
     Dates: start: 20160501, end: 20171104
  6. TURMERIC [Concomitant]
     Active Substance: HERBALS\TURMERIC
  7. VITAMIN C [Concomitant]
     Active Substance: ASCORBIC ACID

REACTIONS (3)
  - Myalgia [None]
  - Renal impairment [None]
  - Fatigue [None]

NARRATIVE: CASE EVENT DATE: 20171104
